FAERS Safety Report 8318301-3 (Version None)
Quarter: 2012Q2

REPORT INFORMATION
  Report Type: 
  Country: None (occurrence: None)
  Receive Date: 20120425
  Receipt Date: 20120411
  Transmission Date: 20120825
  Serious: Yes (Other)
  Sender: FDA-Public Use
  Company Number: 2012MA005026

PATIENT
  Sex: Female

DRUGS (2)
  1. MIRTAZAPINE [Suspect]
     Dosage: 15 MG, QD
  2. MIRTAZAPINE [Suspect]
     Dosage: 15 MG, QD

REACTIONS (9)
  - SLEEP DISORDER [None]
  - GLOSSODYNIA [None]
  - DRY THROAT [None]
  - DECREASED APPETITE [None]
  - RESTLESSNESS [None]
  - DRY EYE [None]
  - PYREXIA [None]
  - NIGHT SWEATS [None]
  - AGITATION [None]
